FAERS Safety Report 20587345 (Version 1)
Quarter: 2022Q1

REPORT INFORMATION
  Report Type: Spontaneous
  Country: US (occurrence: US)
  Receive Date: 20220314
  Receipt Date: 20220314
  Transmission Date: 20220423
  Serious: No
  Sender: FDA-Public Use
  Company Number: US-CELGENE-USA-20220304049

PATIENT
  Age: 70 Year
  Sex: Female

DRUGS (2)
  1. POMALYST [Suspect]
     Active Substance: POMALIDOMIDE
     Indication: Plasma cell myeloma
     Dosage: 2 MG
     Route: 048
     Dates: start: 202111
  2. POMALYST [Suspect]
     Active Substance: POMALIDOMIDE
     Dosage: 2 MG
     Route: 048
     Dates: start: 20220211

REACTIONS (1)
  - Neutrophil count decreased [Unknown]

NARRATIVE: CASE EVENT DATE: 20220201
